FAERS Safety Report 10564429 (Version 1)
Quarter: 2014Q4

REPORT INFORMATION
  Report Type: Spontaneous
  Country: BR (occurrence: BR)
  Receive Date: 20141104
  Receipt Date: 20141104
  Transmission Date: 20150529
  Serious: Yes (Other)
  Sender: FDA-Public Use
  Company Number: BR-BAXTER-2014BAX065045

PATIENT
  Age: 65 Year
  Sex: Male

DRUGS (2)
  1. VIGADEXA [Concomitant]
     Indication: PROPHYLAXIS
     Route: 047
     Dates: start: 20140914, end: 20140915
  2. LACTATED RINGER^S SOLUTION [Suspect]
     Active Substance: RINGER^S SOLUTION, LACTATED
     Indication: PRODUCT USED FOR UNKNOWN INDICATION
     Route: 065
     Dates: start: 20140915, end: 20140915

REACTIONS (2)
  - Corneal oedema [Recovered/Resolved]
  - Corneal opacity [Recovered/Resolved]

NARRATIVE: CASE EVENT DATE: 20140915
